FAERS Safety Report 4740508-2 (Version None)
Quarter: 2005Q3

REPORT INFORMATION
  Report Type: 
  Country: None (occurrence: None)
  Receive Date: 20050810
  Receipt Date: 20050418
  Transmission Date: 20060218
  Serious: Yes (Hospitalization)
  Sender: FDA-Public Use
  Company Number: PHRM2005FR01324

PATIENT
  Age: 55 Year
  Sex: Female
  Weight: 63 kg

DRUGS (5)
  1. BISPHOSPHONATES [Suspect]
     Indication: METASTASES TO BONE
     Route: 048
  2. ZOMETA [Suspect]
     Indication: METASTASES TO BONE
     Dosage: 4 MG, QMO
     Route: 042
     Dates: start: 20030417, end: 20031014
  3. ZOMETA [Suspect]
     Dosage: 4 MG, QMO
     Route: 042
     Dates: start: 20040323, end: 20050301
  4. 5-FU + EPIRUBICIN + CYCLOPHOSPHAMIDE [Concomitant]
     Dates: start: 20030401, end: 20031001
  5. MEGACE [Concomitant]
     Route: 048
     Dates: start: 20040301, end: 20050301

REACTIONS (6)
  - ASEPTIC NECROSIS BONE [None]
  - BONE SWELLING [None]
  - GENERAL PHYSICAL HEALTH DETERIORATION [None]
  - OSTEOLYSIS [None]
  - PAIN IN JAW [None]
  - WEIGHT DECREASED [None]
